FAERS Safety Report 7603970-3 (Version None)
Quarter: 2011Q3

REPORT INFORMATION
  Report Type: 
  Country: None (occurrence: None)
  Receive Date: 20110712
  Receipt Date: 20110706
  Transmission Date: 20111222
  Serious: Yes (Death)
  Sender: FDA-Public Use
  Company Number: PL-ROCHE-787208

PATIENT
  Sex: Male
  Weight: 52 kg

DRUGS (4)
  1. OXALIPLATIN [Concomitant]
     Dosage: DOSE: 8, FREQUENCY: 2X
     Route: 042
     Dates: start: 20110602, end: 20110603
  2. EPIRUBICIN [Concomitant]
     Dosage: DOSE: 78.5, FREQUECNY: DAY 1
     Route: 042
     Dates: start: 20110602, end: 20110602
  3. XELODA [Suspect]
     Dosage: DOSE: 950, FREQUENCY:2X
     Route: 048
     Dates: start: 20110602, end: 20110609
  4. OXALIPLATIN [Concomitant]
     Dosage: DOSE:204.1, FREQUECNY: DAY 1
     Route: 042
     Dates: start: 20110602, end: 20110602

REACTIONS (5)
  - ORAL FUNGAL INFECTION [None]
  - NEUTROPENIA [None]
  - PALMAR-PLANTAR ERYTHRODYSAESTHESIA SYNDROME [None]
  - DISSEMINATED INTRAVASCULAR COAGULATION [None]
  - THROMBOCYTOPENIA [None]
